FAERS Safety Report 10233464 (Version 1)
Quarter: 2014Q2

REPORT INFORMATION
  Report Type: Spontaneous
  Country: DK (occurrence: DK)
  Receive Date: 20140612
  Receipt Date: 20140612
  Transmission Date: 20141212
  Serious: Yes (Hospitalization)
  Sender: FDA-Public Use
  Company Number: DK-WATSON-2014-12013

PATIENT
  Age: 83 Year
  Sex: Female

DRUGS (5)
  1. SIMVASTATIN ACTAVIS [Suspect]
     Indication: HYPERCHOLESTEROLAEMIA
     Dosage: 40 MG, DAILY
     Route: 048
     Dates: start: 2013, end: 20140224
  2. MIRTAZAPIN KRKA [Suspect]
     Indication: DEPRESSION
     Dosage: 30 MG, DAILY
     Route: 048
     Dates: start: 2012, end: 20140305
  3. METOPROLOL SUCCINATE [Concomitant]
     Indication: SICK SINUS SYNDROME
     Dosage: UNK
     Route: 065
  4. MAGNESIA                           /00123201/ [Concomitant]
     Indication: CONSTIPATION
     Dosage: UNK
     Route: 065
  5. XARELTO [Concomitant]
     Indication: ARRHYTHMIA
     Dosage: UNK
     Route: 065

REACTIONS (2)
  - Hepatic function abnormal [Recovering/Resolving]
  - Hepatic enzyme increased [Recovering/Resolving]
